FAERS Safety Report 4266297-6 (Version None)
Quarter: 2004Q1

REPORT INFORMATION
  Report Type: 
  Country: None (occurrence: None)
  Receive Date: 20040107
  Receipt Date: 20040102
  Transmission Date: 20041129
  Serious: Yes (Life-Threatening, Hospitalization)
  Sender: FDA-Public Use
  Company Number: WAES 0401FRA00005

PATIENT
  Age: 86 Year
  Sex: Female
  Weight: 62 kg

DRUGS (5)
  1. ALTHIAZIDE AND SPIRONOLACTONE [Suspect]
     Route: 048
     Dates: end: 20030919
  2. HYZAAR [Suspect]
     Route: 048
     Dates: end: 20030919
  3. LISINOPRIL [Concomitant]
     Route: 048
     Dates: end: 20030919
  4. LORAZEPAM [Concomitant]
     Route: 048
     Dates: end: 20030919
  5. TIANEPTINE SODIUM [Concomitant]
     Indication: DEPRESSION
     Route: 048
     Dates: end: 20030919

REACTIONS (4)
  - DEPRESSED LEVEL OF CONSCIOUSNESS [None]
  - HYPOKALAEMIA [None]
  - HYPONATRAEMIA [None]
  - HYPOPHOSPHATAEMIA [None]
